FAERS Safety Report 10233518 (Version 1)
Quarter: 2014Q1

REPORT INFORMATION
  Report Type: Spontaneous
  Country: US (occurrence: None)
  Receive Date: 20140306
  Receipt Date: 20140306
  Transmission Date: 20141002
  Serious: Yes (Hospitalization)
  Sender: FDA-Public Use
  Company Number: 163-21880-13052474

PATIENT
  Age: 67 Year
  Sex: Female

DRUGS (14)
  1. REVLIMID (LENALIDOMIDE) (10 MILLIGRAM, CAPSULES) [Suspect]
     Indication: PLASMA CELL MYELOMA
     Dosage: 10 MG, 21 IN 28 D, PO
     Route: 048
     Dates: start: 20130502, end: 2013
  2. ALLOPURINOL (ALLOPURINOL) (UNKNOWN) [Concomitant]
  3. AMLODIPINE BESYLATE (AMLODIPINE BESILATE) (UNKNOWN) [Concomitant]
  4. HYDROCODONE-ACETAMINOPHEN (VICODIN) (UNKNOWN) [Concomitant]
  5. LABETALOL HCL (LABETALOL HYDROCHLORIDE) (UNKNOWN) [Concomitant]
  6. LIPITOR (ATORVASTATIN) (UNKNOWN) [Concomitant]
  7. LORAZEPAM (LORAZEPAM) (UNKNOWN) [Concomitant]
  8. ONDANSETRON HCL (ONDANSETRON HYDROCHLORIDE) (TABLETS) [Concomitant]
  9. NITROGLYCERIN (GLYCERYL TRINITRATE) (TABLETS) [Concomitant]
  10. NYSTATIN (NYSTATIN) (POWDER) [Concomitant]
  11. PRILOSEC (OMEPRAZOLE) (TABLETS) [Concomitant]
  12. PROZAC (FLUOXETINE HYDROCHLORIDE) (CAPSULES) [Concomitant]
  13. ASPIRIN ADULT LOW STRENGTH (ACETYLSALICYLIC ACID) (UNKNOWN) [Concomitant]
  14. CATAPRES (CLONIDINE) (UNKNOWN) [Concomitant]

REACTIONS (4)
  - Pain [None]
  - Chills [None]
  - Dehydration [None]
  - Back pain [None]
